FAERS Safety Report 23548227 (Version 1)
Quarter: 2024Q1

REPORT INFORMATION
  Report Type: Spontaneous
  Country: ES (occurrence: ES)
  Receive Date: 20240221
  Receipt Date: 20240221
  Transmission Date: 20240410
  Serious: Yes (Hospitalization)
  Sender: FDA-Public Use
  Company Number: ES-MYLANLABS-2024M1016305

PATIENT
  Age: 50 Year
  Sex: Male

DRUGS (15)
  1. LINEZOLID [Suspect]
     Active Substance: LINEZOLID
     Indication: Pilonidal disease
     Dosage: UNK
     Route: 042
  2. LINEZOLID [Suspect]
     Active Substance: LINEZOLID
     Indication: Hidradenitis
  3. LINEZOLID [Suspect]
     Active Substance: LINEZOLID
     Indication: Condition aggravated
  4. MEROPENEM [Suspect]
     Active Substance: MEROPENEM
     Indication: Pilonidal disease
     Dosage: UNK
     Route: 042
  5. MEROPENEM [Suspect]
     Active Substance: MEROPENEM
     Indication: Hidradenitis
  6. MEROPENEM [Suspect]
     Active Substance: MEROPENEM
     Indication: Condition aggravated
  7. DOXYCYCLINE [Concomitant]
     Active Substance: DOXYCYCLINE
     Indication: Pilonidal disease
     Dosage: UNK
     Route: 065
  8. DOXYCYCLINE [Concomitant]
     Active Substance: DOXYCYCLINE
     Indication: Hidradenitis
  9. DOXYCYCLINE [Concomitant]
     Active Substance: DOXYCYCLINE
     Indication: Condition aggravated
  10. RIFAMPIN [Concomitant]
     Active Substance: RIFAMPIN
     Indication: Pilonidal disease
     Dosage: UNK
     Route: 065
  11. RIFAMPIN [Concomitant]
     Active Substance: RIFAMPIN
     Indication: Condition aggravated
  12. RIFAMPIN [Concomitant]
     Active Substance: RIFAMPIN
     Indication: Hidradenitis
  13. CLINDAMYCIN [Concomitant]
     Active Substance: CLINDAMYCIN
     Indication: Pilonidal disease
     Dosage: UNK
     Route: 065
  14. CLINDAMYCIN [Concomitant]
     Active Substance: CLINDAMYCIN
     Indication: Hidradenitis
  15. CLINDAMYCIN [Concomitant]
     Active Substance: CLINDAMYCIN
     Indication: Condition aggravated

REACTIONS (1)
  - Drug ineffective [Unknown]
